FAERS Safety Report 20460972 (Version 1)
Quarter: 2022Q1

REPORT INFORMATION
  Report Type: Spontaneous
  Country: US (occurrence: US)
  Receive Date: 20220211
  Receipt Date: 20220211
  Transmission Date: 20220423
  Serious: No
  Sender: FDA-Public Use
  Company Number: US-PERRIGO-21US005925

PATIENT
  Age: 64 Year
  Sex: Male
  Weight: 77.098 kg

DRUGS (8)
  1. LOPERAMIDE HYDROCHLORIDE [Suspect]
     Active Substance: LOPERAMIDE HYDROCHLORIDE
     Indication: Colitis
     Dosage: 4 TO 4.5 MG, BID
     Route: 048
     Dates: start: 202004
  2. MESALAMINE [Concomitant]
     Active Substance: MESALAMINE
     Indication: Colitis
     Dosage: 2 TABLETS, TID
     Route: 065
     Dates: start: 201910, end: 202004
  3. MESALAMINE [Concomitant]
     Active Substance: MESALAMINE
     Dosage: 2 TABLETS, BID
     Route: 065
     Dates: start: 202004, end: 2021
  4. MESALAMINE [Concomitant]
     Active Substance: MESALAMINE
     Dosage: 2 TABLETS, QD
     Route: 065
     Dates: start: 2021
  5. LOVASTATIN [Concomitant]
     Active Substance: LOVASTATIN
     Indication: Blood cholesterol increased
     Dosage: DAILY
     Route: 065
     Dates: start: 2016
  6. ASPIRIN                            /00002701/ [Concomitant]
     Indication: Prophylaxis
     Dosage: UNK
     Route: 065
  7. CENTRUM                            /07499601/ [Concomitant]
     Indication: Supplementation therapy
     Dosage: QD
     Route: 065
  8. PROBIOTICS NOS [Concomitant]
     Active Substance: PROBIOTICS NOS
     Indication: Colitis
     Dosage: 12 BILLION/DAY
     Route: 065

REACTIONS (3)
  - Incorrect dose administered [Unknown]
  - Incorrect product administration duration [Unknown]
  - Off label use [Unknown]

NARRATIVE: CASE EVENT DATE: 20200401
